FAERS Safety Report 5324026-9 (Version None)
Quarter: 2007Q2

REPORT INFORMATION
  Report Type: 
  Country: None (occurrence: None)
  Receive Date: 20070514
  Receipt Date: 20070501
  Transmission Date: 20071010
  Serious: Yes (Hospitalization)
  Sender: FDA-Public Use
  Company Number: US-ELI_LILLY_AND_COMPANY-US200702003506

PATIENT
  Age: 50 Year
  Sex: Male
  Weight: 79.365 kg

DRUGS (5)
  1. LISPRO 25LIS75NPL [Suspect]
     Indication: DIABETES MELLITUS NON-INSULIN-DEPENDENT
     Dosage: 18 U, EACH MORNING
     Dates: start: 20070104
  2. LISPRO 25LIS75NPL [Suspect]
     Dosage: 12 U, EACH EVENING
     Dates: start: 20070104
  3. GLYBURIDE [Concomitant]
     Indication: DIABETES MELLITUS
     Dates: start: 20051201
  4. METFORMIN HCL [Concomitant]
     Indication: DIABETES MELLITUS
     Dates: start: 20050601
  5. ALBUTEROL [Concomitant]
     Indication: ASTHMA

REACTIONS (1)
  - ANAEMIA [None]
